FAERS Safety Report 7789042-6 (Version None)
Quarter: 2011Q3

REPORT INFORMATION
  Report Type: 
  Country: None (occurrence: None)
  Receive Date: 20110930
  Receipt Date: 20110923
  Transmission Date: 20111222
  Serious: Yes (Other)
  Sender: FDA-Public Use
  Company Number: IT-JNJFOC-20110903508

PATIENT
  Age: 21 Year
  Sex: Female

DRUGS (1)
  1. RISPERDAL [Suspect]
     Indication: PRODUCT USED FOR UNKNOWN INDICATION
     Route: 048
     Dates: start: 20110908

REACTIONS (3)
  - SELF INJURIOUS BEHAVIOUR [None]
  - SOPOR [None]
  - INTENTIONAL OVERDOSE [None]
